FAERS Safety Report 5192050-5 (Version None)
Quarter: 2006Q4

REPORT INFORMATION
  Report Type: 
  Country: None (occurrence: None)
  Receive Date: 20061221
  Receipt Date: 20061221
  Transmission Date: 20070319
  Serious: Yes (Hospitalization)
  Sender: FDA-Public Use
  Company Number: None

PATIENT
  Age: 61 Year
  Sex: Male
  Weight: 73.5 kg

DRUGS (19)
  1. CEPHALEXIN [Suspect]
  2. ENALAPRIL MALEATE [Concomitant]
  3. INSULIN GLARGINE, HUMAN [Concomitant]
  4. CALAMINE LOTION [Concomitant]
  5. HYDROXYZINE PAMOATE [Concomitant]
  6. SYNTHROID [Concomitant]
  7. COUMADIN [Concomitant]
  8. HYDROGEN PEROXIDE SOLUTION [Concomitant]
  9. SODIUM CHLORIDE [Concomitant]
  10. SALICYLIC ACID 2/SULFUR 2% SHAMPOO [Concomitant]
  11. SILVER SULFADIAZINE [Concomitant]
  12. INSULIN LISPRO HUMAN 1000/ML HUMALOG [Concomitant]
  13. ARTIFICIAL TEARS PVA 1.4%/POVIDONE [Concomitant]
  14. FLUNISOLIDE [Concomitant]
  15. A + D OINT [Concomitant]
  16. SODIUM CHLORIDE [Concomitant]
  17. ATRAC-TAIN CREAM [Concomitant]
  18. RANITIDINE HCL [Concomitant]
  19. LUBRIDERM LOTION UNSCENTED [Concomitant]

REACTIONS (1)
  - RASH [None]
